FAERS Safety Report 25249359 (Version 2)
Quarter: 2025Q2

REPORT INFORMATION
  Report Type: Report from Study
  Country: US (occurrence: US)
  Receive Date: 20250429
  Receipt Date: 20250501
  Transmission Date: 20250717
  Serious: Yes (Other)
  Sender: ROCHE
  Company Number: US-ROCHE-10000255633

PATIENT
  Age: 48 Year
  Sex: Female
  Weight: 81.65 kg

DRUGS (20)
  1. RITUXAN [Suspect]
     Active Substance: RITUXIMAB
     Indication: Rheumatoid arthritis
     Dosage: THEN EVERY 6 MONTH
     Route: 042
     Dates: start: 20250127, end: 20250127
  2. RITUXAN [Suspect]
     Active Substance: RITUXIMAB
     Indication: Systemic sclerosis pulmonary
  3. CELLCEPT [Suspect]
     Active Substance: MYCOPHENOLATE MOFETIL
     Indication: Scleroderma
     Dosage: 200 MG/ML
     Route: 048
  4. CELLCEPT [Suspect]
     Active Substance: MYCOPHENOLATE MOFETIL
     Route: 048
  5. CELLCEPT [Suspect]
     Active Substance: MYCOPHENOLATE MOFETIL
     Route: 048
  6. ACTEMRA [Suspect]
     Active Substance: TOCILIZUMAB
     Indication: Rheumatoid arthritis
     Route: 058
     Dates: start: 20250127
  7. OMEPRAZOLE [Concomitant]
     Active Substance: OMEPRAZOLE
  8. LEVOTHYROXINE [Concomitant]
     Active Substance: LEVOTHYROXINE
  9. DRISDOL [Concomitant]
     Active Substance: ERGOCALCIFEROL
  10. PROBENECID [Concomitant]
     Active Substance: PROBENECID
  11. HYDROXYCHLOROQUINE [Concomitant]
     Active Substance: HYDROXYCHLOROQUINE
  12. TYLENOL [Concomitant]
     Active Substance: ACETAMINOPHEN
  13. PROBENECID [Concomitant]
     Active Substance: PROBENECID
  14. CETIRIZINE [Concomitant]
     Active Substance: CETIRIZINE HYDROCHLORIDE
  15. CHOLECALCIFEROL [Concomitant]
     Active Substance: CHOLECALCIFEROL
  16. FAMOTIDINE [Concomitant]
     Active Substance: FAMOTIDINE
  17. IBUPROFEN [Concomitant]
     Active Substance: IBUPROFEN
  18. NYSTATIN [Concomitant]
     Active Substance: NYSTATIN
  19. BENADRYL [Concomitant]
     Active Substance: DIPHENHYDRAMINE HYDROCHLORIDE
     Route: 042
     Dates: start: 20250127, end: 20250127
  20. SOLU-MEDROL [Concomitant]
     Active Substance: METHYLPREDNISOLONE SODIUM SUCCINATE
     Route: 042
     Dates: start: 20250127, end: 20250127

REACTIONS (8)
  - Scleroderma [Unknown]
  - Interstitial lung disease [Recovered/Resolved]
  - Dyspnoea [Unknown]
  - Gastrooesophageal reflux disease [Unknown]
  - Raynaud^s phenomenon [Unknown]
  - Clubbing [Unknown]
  - Acrosclerosis [Unknown]
  - Pruritus [Recovered/Resolved]

NARRATIVE: CASE EVENT DATE: 20250127
